FAERS Safety Report 5233936-2 (Version None)
Quarter: 2007Q1

REPORT INFORMATION
  Report Type: 
  Country: None (occurrence: None)
  Receive Date: 20070208
  Receipt Date: 20070201
  Transmission Date: 20070707
  Serious: Yes (Other)
  Sender: FDA-Public Use
  Company Number: US-ROCHE-480881

PATIENT
  Age: 77 Year
  Sex: Female

DRUGS (5)
  1. BONIVA [Suspect]
     Indication: OSTEOPENIA
     Route: 048
     Dates: start: 20061101, end: 20061201
  2. ARIMIDEX [Concomitant]
     Indication: BREAST CANCER
  3. NEXIUM [Concomitant]
     Indication: ILL-DEFINED DISORDER
  4. LEVOTHYROXINE SODIUM [Concomitant]
     Indication: HYPOTHYROIDISM
  5. NIFEDIPINE [Concomitant]
     Indication: BLOOD PRESSURE

REACTIONS (2)
  - DRUG ERUPTION [None]
  - PALPABLE PURPURA [None]
